FAERS Safety Report 8005714-2 (Version None)
Quarter: 2011Q4

REPORT INFORMATION
  Report Type: 
  Country: None (occurrence: None)
  Receive Date: 20111223
  Receipt Date: 20111222
  Transmission Date: 20120403
  Serious: Yes (Hospitalization)
  Sender: FDA-Public Use
  Company Number: GXKR2011DE003440

PATIENT
  Sex: Male
  Weight: 69 kg

DRUGS (2)
  1. FALITHROM [Interacting]
     Indication: ATRIAL FIBRILLATION
     Dosage: 0.25 DF TO 0.3 MG
     Route: 048
     Dates: start: 20110601
  2. DICLOFENAC SODIUM [Suspect]
     Indication: BACK PAIN
     Dosage: 100 MG, QD
     Route: 048
     Dates: start: 20111116

REACTIONS (1)
  - INTERNATIONAL NORMALISED RATIO INCREASED [None]
